FAERS Safety Report 9435255 (Version 2)
Quarter: 2013Q3

REPORT INFORMATION
  Report Type: Spontaneous
  Country: US (occurrence: US)
  Receive Date: 20130801
  Receipt Date: 20130820
  Transmission Date: 20140515
  Serious: No
  Sender: FDA-Public Use
  Company Number: US-009507513-1307USA016692

PATIENT
  Age: 60 Year
  Sex: Female
  Weight: 106.58 kg

DRUGS (1)
  1. TINACTIN SPRAY POWDER [Suspect]
     Indication: TINEA PEDIS
     Dosage: 1 DF, ONCE
     Route: 061
     Dates: start: 20130711, end: 20130711

REACTIONS (1)
  - Burns first degree [Recovered/Resolved]
